FAERS Safety Report 5445994-0 (Version None)
Quarter: 2007Q3

REPORT INFORMATION
  Report Type: 
  Country: None (occurrence: None)
  Receive Date: 20070907
  Receipt Date: 20070829
  Transmission Date: 20080115
  Serious: Yes (Life-Threatening)
  Sender: FDA-Public Use
  Company Number: JP-JNJFOC-20070705935

PATIENT
  Sex: Male

DRUGS (2)
  1. LEVOFLOXACIN [Suspect]
     Indication: SCAN WITH CONTRAST
     Route: 048
  2. LEVOFLOXACIN [Suspect]
     Indication: INFECTION PROPHYLAXIS
     Route: 048

REACTIONS (5)
  - ALTERED STATE OF CONSCIOUSNESS [None]
  - CARDIAC ARREST [None]
  - PYREXIA [None]
  - RHABDOMYOLYSIS [None]
  - SEPSIS [None]
